FAERS Safety Report 9239514 (Version 1)
Quarter: 2013Q2

REPORT INFORMATION
  Report Type: Spontaneous
  Country: US (occurrence: US)
  Receive Date: 20130418
  Receipt Date: 20130418
  Transmission Date: 20140414
  Serious: No
  Sender: FDA-Public Use
  Company Number: US-PFIZER INC-2013121273

PATIENT
  Sex: Female

DRUGS (7)
  1. LYRICA [Suspect]
     Indication: NEURALGIA
     Dosage: 50 MG, 2X/DAY
     Route: 048
     Dates: start: 20130415
  2. AZOR [Concomitant]
     Indication: HYPERTENSION
     Dosage: 10/40 MG, UNK
  3. FENOFIBRATE [Concomitant]
     Indication: BLOOD CHOLESTEROL INCREASED
     Dosage: 134 MG, UNK
  4. CELEBREX [Concomitant]
     Indication: ARTHRITIS
     Dosage: UNK
  5. METFORMIN [Concomitant]
     Dosage: UNK, 2X/DAY
  6. SPIRIVA [Concomitant]
     Indication: CHRONIC OBSTRUCTIVE PULMONARY DISEASE
     Dosage: UNK, 1X/DAY
  7. SYMBICORT [Concomitant]
     Indication: CHRONIC OBSTRUCTIVE PULMONARY DISEASE
     Dosage: 160/4.5 UNK, 2X/DAY

REACTIONS (2)
  - Sluggishness [Unknown]
  - Impaired driving ability [Unknown]
